FAERS Safety Report 7404614-6 (Version None)
Quarter: 2011Q2

REPORT INFORMATION
  Report Type: 
  Country: None (occurrence: None)
  Receive Date: 20110411
  Receipt Date: 20110331
  Transmission Date: 20111010
  Serious: Yes (Hospitalization)
  Sender: FDA-Public Use
  Company Number: BR-BIOGENIDEC-2010BI039863

PATIENT
  Age: 54 Year
  Sex: Female

DRUGS (5)
  1. AVONEX [Suspect]
     Route: 030
     Dates: start: 20100901
  2. LIORESAL [Concomitant]
     Indication: MUSCLE SPASTICITY
     Dates: start: 20101109
  3. GABAPENTIN [Concomitant]
     Indication: MULTIPLE SCLEROSIS
  4. AVONEX [Suspect]
     Dates: start: 20101101
  5. AVONEX [Suspect]
     Indication: MULTIPLE SCLEROSIS
     Route: 030
     Dates: start: 20100628, end: 20100101

REACTIONS (6)
  - MULTIPLE SCLEROSIS RELAPSE [None]
  - HEPATIC ENCEPHALOPATHY [None]
  - HEPATITIS [None]
  - COMA [None]
  - URINARY TRACT INFECTION [None]
  - CHOLELITHIASIS [None]
